FAERS Safety Report 24664805 (Version 1)
Quarter: 2024Q4

REPORT INFORMATION
  Report Type: Spontaneous
  Country: US (occurrence: US)
  Receive Date: 20241126
  Receipt Date: 20241126
  Transmission Date: 20250115
  Serious: Yes (Other)
  Sender: SANOFI AVENTIS
  Company Number: US-SA-2024SA342090

PATIENT
  Sex: Female

DRUGS (2)
  1. DUPIXENT [Suspect]
     Active Substance: DUPILUMAB
     Indication: Neurodermatitis
     Dosage: 300 MG, QOW
     Route: 058
     Dates: start: 202302
  2. RASUVO [Concomitant]
     Active Substance: METHOTREXATE SODIUM

REACTIONS (4)
  - Rheumatoid arthritis [Unknown]
  - Malaise [Unknown]
  - COVID-19 [Unknown]
  - Rash [Unknown]
